FAERS Safety Report 9748119 (Version 3)
Quarter: 2014Q1

REPORT INFORMATION
  Report Type: Spontaneous
  Country: US (occurrence: US)
  Receive Date: 20131212
  Receipt Date: 20140214
  Transmission Date: 20141002
  Serious: No
  Sender: FDA-Public Use
  Company Number: US-PFIZER INC-2013351504

PATIENT
  Age: 60 Year
  Sex: Female

DRUGS (16)
  1. XELJANZ [Suspect]
     Indication: RHEUMATOID ARTHRITIS
     Dosage: 5 MG, 2X/DAY
     Route: 048
     Dates: start: 201308, end: 201311
  2. XELJANZ [Suspect]
     Dosage: UNK
     Dates: start: 201309, end: 201311
  3. ARAVA [Suspect]
     Indication: RHEUMATOID ARTHRITIS
     Dosage: 20 MG, DAILY
  4. NEXIUM [Concomitant]
     Indication: RHEUMATOID ARTHRITIS
     Dosage: 40 MG, 1X/DAY (1 CAPSULE Q DAY)
  5. FOSAMAX [Concomitant]
     Indication: OSTEOPOROSIS
     Dosage: 70 MG, WEEKLY (TAKE 1 TABLE PO)
     Route: 048
  6. FOSAMAX [Concomitant]
     Indication: OSTEOPENIA
  7. IBUPROFEN [Concomitant]
     Dosage: 800 MG, 3X/DAY
  8. VALTREX [Concomitant]
     Indication: OSTEOPOROSIS
     Dosage: 500 MG, DAILY
  9. VALTREX [Concomitant]
     Indication: OSTEOPENIA
  10. VOLTAREN [Concomitant]
     Indication: RHEUMATOID ARTHRITIS
     Dosage: UNK, APPLY 2-4 GMS AS DIR TO AFFECTED JOINTS 3-4 TIME DAILY NOT TO EXCEED 32GMS DAILY
  11. LISINOPRIL [Concomitant]
     Dosage: 10 MG, DAILY
     Route: 048
  12. RANEXA [Concomitant]
     Dosage: 500 MG, 2X/DAY (ER 12 HR)
     Route: 048
  13. ALBUTEROL SULFATE [Concomitant]
     Dosage: UNK, AS NEEDED (1.25 MG/ 3ML)
     Route: 045
  14. SYMBICORT [Concomitant]
     Dosage: UNK, AS NEEDED (PRN)
     Route: 045
  15. SINGULAIR [Concomitant]
     Dosage: 10 MG, 1X/DAY (Q DAY)
     Route: 048
  16. PLAVIX [Concomitant]
     Dosage: 75 MG, 1X/DAY (Q DAY)
     Route: 048

REACTIONS (2)
  - Bronchitis [Recovered/Resolved]
  - Sinusitis [Recovered/Resolved]
